FAERS Safety Report 25032190 (Version 3)
Quarter: 2025Q2

REPORT INFORMATION
  Report Type: Spontaneous
  Country: US (occurrence: US)
  Receive Date: 20250303
  Receipt Date: 20250403
  Transmission Date: 20250717
  Serious: No
  Sender: PFIZER
  Company Number: US-PFIZER INC-202500043406

PATIENT
  Age: 13 Year
  Sex: Female
  Weight: 32.66 kg

DRUGS (1)
  1. GENOTROPIN [Suspect]
     Active Substance: SOMATROPIN
     Indication: Growth hormone deficiency

REACTIONS (3)
  - Device physical property issue [Unknown]
  - Drug dose omission by device [Unknown]
  - Device use issue [Unknown]
